FAERS Safety Report 6827444-2 (Version None)
Quarter: 2010Q3

REPORT INFORMATION
  Report Type: 
  Country: None (occurrence: None)
  Receive Date: 20100709
  Receipt Date: 20070116
  Transmission Date: 20110219
  Serious: No
  Sender: FDA-Public Use
  Company Number: US-PFIZER INC-2007005275

PATIENT
  Sex: Female
  Weight: 60.33 kg

DRUGS (3)
  1. CHANTIX [Suspect]
     Indication: SMOKING CESSATION THERAPY
     Dates: start: 20070111
  2. EFFEXOR [Concomitant]
     Indication: DEPRESSION
  3. ZYRTEC [Concomitant]
     Indication: MULTIPLE ALLERGIES

REACTIONS (3)
  - CONSTIPATION [None]
  - DEPRESSION [None]
  - FLATULENCE [None]
